FAERS Safety Report 6780312-7 (Version None)
Quarter: 2010Q2

REPORT INFORMATION
  Report Type: 
  Country: None (occurrence: None)
  Receive Date: 20100618
  Receipt Date: 20100610
  Transmission Date: 20101027
  Serious: Yes (Death, Other)
  Sender: FDA-Public Use
  Company Number: JP-ABBOTT-10P-087-0650442-00

PATIENT
  Age: 22 Year
  Sex: Male

DRUGS (1)
  1. VALPROIC ACID [Suspect]
     Indication: LENNOX-GASTAUT SYNDROME

REACTIONS (2)
  - HEPATIC STEATOSIS [None]
  - PNEUMONIA ASPIRATION [None]
